FAERS Safety Report 7674139-1 (Version None)
Quarter: 2011Q3

REPORT INFORMATION
  Report Type: 
  Country: None (occurrence: None)
  Receive Date: 20110810
  Receipt Date: 20110727
  Transmission Date: 20111222
  Serious: Yes (Hospitalization)
  Sender: FDA-Public Use
  Company Number: US-ELI_LILLY_AND_COMPANY-US201004007290

PATIENT
  Sex: Female
  Weight: 37.732 kg

DRUGS (10)
  1. FORTEO [Suspect]
     Dosage: UNK
  2. FORTEO [Suspect]
     Indication: OSTEOPOROSIS
     Dosage: 20 UG, DAILY (1/D)
     Route: 058
     Dates: start: 20090811
  3. EVISTA [Suspect]
  4. NEURONTIN [Concomitant]
  5. FORTEO [Suspect]
     Dosage: 20 UG, QD
     Route: 058
     Dates: end: 20110720
  6. SYMBICORT [Concomitant]
  7. VITAMIN D [Concomitant]
  8. SPIRIVA [Concomitant]
  9. CRESTOR [Concomitant]
  10. KLONOPIN [Concomitant]

REACTIONS (7)
  - HERPES ZOSTER [None]
  - BURNING SENSATION [None]
  - NECK INJURY [None]
  - MUSCLE STRAIN [None]
  - DRUG INEFFECTIVE [None]
  - PULMONARY EMBOLISM [None]
  - MALAISE [None]
